FAERS Safety Report 19546986 (Version 1)
Quarter: 2021Q3

REPORT INFORMATION
  Report Type: Report from Study
  Country: CO (occurrence: CO)
  Receive Date: 20210714
  Receipt Date: 20210714
  Transmission Date: 20211014
  Serious: Yes (Hospitalization)
  Sender: FDA-Public Use
  Company Number: NVSC2019CO020897

PATIENT
  Age: 10 Year
  Sex: Female
  Weight: 23 kg

DRUGS (6)
  1. JADENU [Suspect]
     Active Substance: DEFERASIROX
     Indication: THALASSAEMIA
     Dosage: 540 MG, QD
     Route: 048
     Dates: start: 201908
  2. JADENU [Suspect]
     Active Substance: DEFERASIROX
     Dosage: 540 MG, QD
     Route: 065
     Dates: start: 20191120
  3. JADENU [Suspect]
     Active Substance: DEFERASIROX
     Dosage: 540 MG, QD
     Route: 048
     Dates: start: 20191107
  4. JADENU [Suspect]
     Active Substance: DEFERASIROX
     Dosage: UNK, QD
     Route: 048
  5. JADENU [Suspect]
     Active Substance: DEFERASIROX
     Dosage: 540 MG, QD (ONE OF 360 MG AND ONE OF 180 MG)
     Route: 048
  6. FOLIC ACID. [Concomitant]
     Active Substance: FOLIC ACID
     Indication: IRON OVERLOAD
     Dosage: 5 MG, QD
     Route: 048

REACTIONS (14)
  - Gastroenteritis [Unknown]
  - Vomiting [Unknown]
  - Haemoglobin decreased [Unknown]
  - Dizziness [Recovered/Resolved]
  - Illness [Unknown]
  - Abdominal pain [Unknown]
  - Diarrhoea [Unknown]
  - Pyrexia [Recovered/Resolved]
  - Cough [Unknown]
  - Headache [Recovered/Resolved]
  - Dizziness [Unknown]
  - Headache [Unknown]
  - Salmonellosis [Not Recovered/Not Resolved]
  - Abdominal pain upper [Unknown]

NARRATIVE: CASE EVENT DATE: 20191018
